FAERS Safety Report 6997173-3 (Version None)
Quarter: 2010Q3

REPORT INFORMATION
  Report Type: 
  Country: None (occurrence: None)
  Receive Date: 20100918
  Receipt Date: 20091027
  Transmission Date: 20110219
  Serious: No
  Sender: FDA-Public Use
  Company Number: US-WYE-H11045009

PATIENT
  Sex: Male
  Weight: 83.99 kg

DRUGS (3)
  1. PRISTIQ [Suspect]
     Indication: DEPRESSION
     Route: 048
     Dates: start: 20090601, end: 20090801
  2. PRISTIQ [Suspect]
     Dosage: TAPER OFF THE DRUG ON HIS OWN
     Route: 048
     Dates: start: 20090801, end: 20090901
  3. SIMVASTATIN [Concomitant]

REACTIONS (5)
  - DRUG WITHDRAWAL SYNDROME [None]
  - EJACULATION DISORDER [None]
  - INTENTIONAL DRUG MISUSE [None]
  - LIBIDO DECREASED [None]
  - TINNITUS [None]
